FAERS Safety Report 21705212 (Version 1)
Quarter: 2022Q4

REPORT INFORMATION
  Report Type: Spontaneous
  Country: CN (occurrence: CN)
  Receive Date: 20221209
  Receipt Date: 20221209
  Transmission Date: 20230113
  Serious: Yes (Other)
  Sender: FDA-Public Use
  Company Number: CN-HALEON-CNCH2022APC048131

PATIENT

DRUGS (4)
  1. IBUPROFEN [Suspect]
     Active Substance: IBUPROFEN
     Indication: Rheumatoid arthritis
     Dosage: 300 MG, QD
     Route: 048
     Dates: start: 20221202, end: 20221202
  2. IBUPROFEN [Suspect]
     Active Substance: IBUPROFEN
     Indication: Arthralgia
  3. IBUPROFEN [Suspect]
     Active Substance: IBUPROFEN
     Indication: Fatigue
  4. IBUPROFEN [Suspect]
     Active Substance: IBUPROFEN
     Indication: Asthenia

REACTIONS (5)
  - Rheumatoid arthritis [Recovering/Resolving]
  - Nausea [Recovering/Resolving]
  - Vomiting [Recovering/Resolving]
  - Abdominal discomfort [Recovering/Resolving]
  - Product use in unapproved indication [Unknown]

NARRATIVE: CASE EVENT DATE: 20221202
